FAERS Safety Report 11451298 (Version 1)
Quarter: 2015Q3

REPORT INFORMATION
  Report Type: Spontaneous
  Country: US (occurrence: US)
  Receive Date: 20150903
  Receipt Date: 20150903
  Transmission Date: 20151125
  Serious: No
  Sender: FDA-Public Use
  Company Number: US-B.I. PHARMACEUTICALS,INC./RIDGEFIELD-2015-BI-46322BP

PATIENT
  Sex: Male

DRUGS (1)
  1. PRADAXA [Suspect]
     Active Substance: DABIGATRAN ETEXILATE MESYLATE
     Indication: NEPHROLITHIASIS
     Route: 065

REACTIONS (5)
  - Insomnia [Unknown]
  - Tongue ulceration [Unknown]
  - Impaired driving ability [Unknown]
  - Dizziness [Unknown]
  - Off label use [Unknown]
